FAERS Safety Report 4735033-9 (Version None)
Quarter: 2005Q3

REPORT INFORMATION
  Report Type: 
  Country: None (occurrence: None)
  Receive Date: 20050804
  Receipt Date: 20050629
  Transmission Date: 20060218
  Serious: Yes (Hospitalization)
  Sender: FDA-Public Use
  Company Number: AU-MERCK-0507AUS00066

PATIENT
  Age: 70 Year
  Sex: Female

DRUGS (12)
  1. FOSAMAX [Suspect]
     Indication: OSTEOPOROSIS
     Route: 048
     Dates: start: 20020101, end: 20050701
  2. FOSAMAX [Suspect]
     Route: 048
     Dates: start: 20050701
  3. ESTROGENS, CONJUGATED [Concomitant]
     Route: 065
     Dates: start: 20020505
  4. METFORMIN HYDROCHLORIDE [Concomitant]
     Route: 065
     Dates: start: 20020808
  5. ALBUTEROL SULFATE [Concomitant]
     Route: 065
     Dates: start: 20020423
  6. TERBUTALINE SULFATE [Concomitant]
     Route: 065
  7. CALCIUM CARBONATE [Concomitant]
     Route: 065
  8. NITRAZEPAM [Concomitant]
     Route: 065
  9. DIAZEPAM [Concomitant]
     Route: 065
  10. TIOTROPIUM BROMIDE [Concomitant]
     Route: 065
     Dates: start: 20030205
  11. CEPHALEXIN [Concomitant]
     Route: 065
     Dates: start: 20040901
  12. TEMAZEPAM [Concomitant]
     Route: 065
     Dates: start: 20040507

REACTIONS (2)
  - CATARACT [None]
  - RETINAL DETACHMENT [None]
